FAERS Safety Report 9958662 (Version 1)
Quarter: 2014Q1

REPORT INFORMATION
  Report Type: Spontaneous
  Country: JP (occurrence: None)
  Receive Date: 20140227
  Receipt Date: 20140227
  Transmission Date: 20141002
  Serious: Yes (Death, Other)
  Sender: FDA-Public Use
  Company Number: 204781

PATIENT
  Age: 48 Year
  Sex: Female

DRUGS (2)
  1. DOTAREM [Suspect]
     Indication: NUCLEAR MAGNETIC RESONANCE IMAGING
     Dosage: 20 ML (20 ML, 1 IN 1 D), INTRAVENOUS (NOT OTHERWISE SPECIFIED)
     Route: 042
     Dates: start: 20140203, end: 20140203
  2. VOLTAREN (DICLOFENAC SODIUM) (DICLOFENAC SODIUM) [Concomitant]

REACTIONS (4)
  - Infusion site pain [None]
  - Musculoskeletal pain [None]
  - Vomiting [None]
  - Cardio-respiratory arrest [None]
